FAERS Safety Report 7618557-6 (Version None)
Quarter: 2011Q3

REPORT INFORMATION
  Report Type: 
  Country: None (occurrence: None)
  Receive Date: 20110718
  Receipt Date: 20110713
  Transmission Date: 20111222
  Serious: Yes (Hospitalization)
  Sender: FDA-Public Use
  Company Number: CH-PFIZER INC-2011158049

PATIENT
  Age: 53 Year
  Sex: Female
  Weight: 84 kg

DRUGS (21)
  1. ACETAMINOPHEN [Concomitant]
     Dosage: 500 MG, 4X/DAY
     Route: 048
  2. PARAGOL N [Concomitant]
     Dosage: UNK
  3. PREDNITOP [Concomitant]
     Dosage: UNK
     Route: 003
  4. SIRDALUD MR [Concomitant]
     Dosage: 6 MG, 3X/DAY
     Route: 048
  5. CITALOPRAM MEPHA [Concomitant]
     Dosage: 20 MG, 1X/DAY
     Route: 048
  6. BEPANTHEN PLUS [Concomitant]
     Dosage: UNK
     Route: 003
  7. NEBIVOLOL HCL [Concomitant]
     Dosage: 5 MG, 1X/DAY
     Route: 048
  8. CALCIMAGON-D3 [Concomitant]
     Dosage: UNK, TWICE DAILY
     Route: 048
  9. MYDOCALM ^LABATEC^ [Concomitant]
     Dosage: 150 MG, 1X/DAY
     Route: 048
  10. TORSEMIDE [Concomitant]
     Dosage: 10 MG, 1X/DAY
     Route: 048
  11. VISCOTEARS [Concomitant]
     Dosage: UNK, ONCE DAILY
     Route: 047
  12. LYRICA [Suspect]
     Dosage: 150 MG, 3X/DAY
     Route: 048
     Dates: start: 20110428, end: 20110506
  13. NOVALGIN [Concomitant]
     Dosage: 500 MG, 4X/DAY
     Route: 048
  14. MAGNESIUM DIASPORAL [Concomitant]
     Dosage: 300 MG, 1X/DAY
     Route: 048
  15. OXYCONTIN [Concomitant]
     Dosage: 40 MG, 2X/DAY
     Route: 048
  16. BURGERSTEIN VITAMIN C [Concomitant]
     Dosage: 500 MG, 1X/DAY
     Route: 048
  17. DEPAKENE [Concomitant]
     Dosage: 500 MG, UNK
     Route: 048
  18. PANTOPRAZOLE [Concomitant]
     Dosage: 40 MG, 2X/DAY
     Route: 048
  19. DIAZEPAM [Concomitant]
     Dosage: 5 MG, 1X/DAY
     Route: 041
  20. CIMIFEMIN UNO [Concomitant]
     Dosage: UNK, ONCE DAILY
  21. VENTOLIN HFA [Concomitant]
     Dosage: 100 MG, 2X/DAY
     Route: 048

REACTIONS (3)
  - PEMPHIGOID [None]
  - PRURITUS [None]
  - SKIN EROSION [None]
